FAERS Safety Report 7546671-2 (Version None)
Quarter: 2011Q2

REPORT INFORMATION
  Report Type: 
  Country: None (occurrence: None)
  Receive Date: 20110614
  Receipt Date: 20110610
  Transmission Date: 20111010
  Serious: Yes (Life-Threatening, Hospitalization)
  Sender: FDA-Public Use
  Company Number: GB-ASTRAZENECA-2011SE35511

PATIENT
  Age: 48 Year
  Sex: Female

DRUGS (3)
  1. ZOLADEX [Suspect]
     Indication: ANAEMIA
     Route: 058
     Dates: start: 20110317
  2. ZOLADEX [Suspect]
     Indication: UTERINE LEIOMYOMA
     Route: 058
     Dates: start: 20110317
  3. ZOLADEX [Suspect]
     Indication: MENINGORRHAGIA
     Route: 058
     Dates: start: 20110317

REACTIONS (4)
  - SUPERIOR SAGITTAL SINUS THROMBOSIS [None]
  - HEADACHE [None]
  - PAIN [None]
  - VOMITING [None]
